FAERS Safety Report 4461868-6 (Version None)
Quarter: 2004Q3

REPORT INFORMATION
  Report Type: 
  Country: None (occurrence: None)
  Receive Date: 20040929
  Receipt Date: 20031106
  Transmission Date: 20050211
  Serious: No
  Sender: FDA-Public Use
  Company Number: US-GLAXOSMITHKLINE-A0433267A

PATIENT
  Age: 78 Year
  Sex: Male

DRUGS (5)
  1. SEREVENT [Suspect]
     Indication: ILL-DEFINED DISORDER
     Dosage: 1PUFF TWICE PER DAY
     Route: 055
     Dates: start: 20031030
  2. LEVOXYL [Concomitant]
  3. TENORMIN [Concomitant]
  4. FLOVENT [Concomitant]
  5. PAXIL [Concomitant]

REACTIONS (1)
  - DIZZINESS [None]
